FAERS Safety Report 3207753 (Version 3)
Quarter: 2020Q3

REPORT INFORMATION
  Report Type: Spontaneous
  Country: US (occurrence: None)
  Receive Date: 19981210
  Receipt Date: 19990302
  Transmission Date: 20201105
  Serious: Yes (Life-Threatening)
  Sender: FDA-Public Use
  Company Number: 9840311

PATIENT
  Age: 41 Year
  Sex: Female

DRUGS (11)
  1. FENTANYL. [Suspect]
     Active Substance: FENTANYL
     Indication: ANAESTHESIA
     Dosage: 100.00 MCG TOTAL:INTRAVENOUS
     Route: 042
     Dates: start: 19981120
  2. PROPOFOL. [Suspect]
     Active Substance: PROPOFOL
     Indication: ANAESTHESIA
     Dosage: 200.00 MG TOTAL:INTRAVENOUS
     Route: 042
     Dates: start: 19981120
  3. LACTATED RINGERS SOLUTION [Concomitant]
     Active Substance: CALCIUM CHLORIDE\POTASSIUM CHLORIDE\SODIUM CHLORIDE\SODIUM LACTATE
  4. HYDROCHLOROTHIAZIDE. [Concomitant]
     Active Substance: HYDROCHLOROTHIAZIDE
  5. ENTEX LQ [Concomitant]
     Active Substance: GUAIFENESIN\PHENYLEPHRINE HYDROCHLORIDE
  6. HEPARIN [Concomitant]
     Active Substance: HEPARIN SODIUM
  7. ROCURONIUM [Concomitant]
  8. LOTENSIN [Concomitant]
     Active Substance: BENAZEPRIL HYDROCHLORIDE
  9. ALATROFLOXACIN MESYLATE. [Suspect]
     Active Substance: ALATROFLOXACIN MESYLATE
     Indication: PROPHYLAXIS
     Dosage: 200.00 MG TOTAL:INTRAVENOUS
     Route: 042
     Dates: start: 19981120, end: 19981120
  10. VERSED [Suspect]
     Active Substance: MIDAZOLAM HYDROCHLORIDE
     Indication: ANAESTHESIA
     Dosage: 2.00 MG TOTAL:INTRAVENOUS
     Route: 042
     Dates: start: 19981120
  11. SYNTHROID [Concomitant]
     Active Substance: LEVOTHYROXINE SODIUM

REACTIONS (6)
  - Tachycardia [None]
  - Urticaria [None]
  - Rash erythematous [None]
  - Dermatitis [None]
  - Pulse absent [None]
  - Hypotension [None]

NARRATIVE: CASE EVENT DATE: 19981120
